FAERS Safety Report 8297697-5 (Version None)
Quarter: 2012Q2

REPORT INFORMATION
  Report Type: 
  Country: None (occurrence: None)
  Receive Date: 20120419
  Receipt Date: 20120410
  Transmission Date: 20120825
  Serious: Yes (Hospitalization)
  Sender: FDA-Public Use
  Company Number: US-US-EMD SERONO, INC.-7122687

PATIENT
  Sex: Female
  Weight: 71 kg

DRUGS (8)
  1. REBIF [Suspect]
     Route: 058
     Dates: start: 20060227
  2. REBIF [Suspect]
     Indication: MULTIPLE SCLEROSIS
     Dates: start: 20041108, end: 20051115
  3. NUVIGIL [Concomitant]
     Indication: FATIGUE
  4. ZOLOFT [Concomitant]
     Indication: SLEEP DISORDER
  5. ARICEPT [Concomitant]
     Indication: COGNITIVE DISORDER
  6. AMPYRA [Concomitant]
     Indication: GAIT DISTURBANCE
  7. AMPYRA [Concomitant]
  8. ZOLOFT [Concomitant]
     Indication: DEPRESSION

REACTIONS (8)
  - ROTATOR CUFF SYNDROME [None]
  - FALL [None]
  - CONCUSSION [None]
  - INJECTION SITE HAEMORRHAGE [None]
  - SINUSITIS [None]
  - UPPER LIMB FRACTURE [None]
  - MULTIPLE SCLEROSIS RELAPSE [None]
  - DIARRHOEA [None]
